FAERS Safety Report 9392848 (Version 2)
Quarter: 2013Q3

REPORT INFORMATION
  Report Type: Spontaneous
  Country: IT (occurrence: IT)
  Receive Date: 20130710
  Receipt Date: 20130830
  Transmission Date: 20140515
  Serious: Yes (Hospitalization)
  Sender: FDA-Public Use
  Company Number: IT-SANOFI-AVENTIS-2013SA066842

PATIENT
  Age: 68 Year
  Sex: Female
  Weight: 65 kg

DRUGS (12)
  1. CLEXANE [Suspect]
     Indication: PROPHYLAXIS
     Dosage: DOSE:1 UNIT(S)
     Route: 058
     Dates: start: 20130201, end: 20130507
  2. VALSARTAN/HYDROCHLOROTHIAZIDE [Concomitant]
     Dosage: DOSE:1 UNIT(S)
     Route: 048
  3. CITALOPRAM [Concomitant]
     Dosage: DOSE:1 UNIT(S)
     Route: 048
  4. ISOSORBIDE MONONITRATE [Concomitant]
     Route: 048
  5. SIMVASTATIN [Concomitant]
     Route: 048
  6. LASIX [Concomitant]
     Dosage: STRENGTH: 25 MG DOSE:2 UNIT(S)
     Route: 048
  7. FOLINA [Concomitant]
     Dosage: STRENGTH: 5 MG DOSE:1 UNIT(S)
     Route: 048
  8. HUMALOG [Concomitant]
     Dosage: STRENGTH:100 IU/ML
     Route: 058
  9. LEVEMIR FLEXPEN [Concomitant]
     Dosage: PREFILLED SYRINGE; STRENGTH: 100 IU/ML
     Route: 058
  10. PALEXIA [Concomitant]
     Dosage: STRENGTH: 50 MG; PROLONGED RELEASE TABLETS DOSE:1 UNIT(S)
     Route: 048
  11. RIVOTRIL [Concomitant]
     Dosage: STRENGTH:2.5 MG/ML
     Route: 048
  12. PANTOPRAZOLE [Concomitant]
     Dosage: STRENGTH: 20 MG DOSE:1 UNIT(S)
     Route: 048

REACTIONS (4)
  - Renal failure chronic [Recovering/Resolving]
  - Blood creatinine increased [Recovering/Resolving]
  - Gastric haemorrhage [Recovering/Resolving]
  - Anaemia [Recovering/Resolving]
